FAERS Safety Report 7205611-6 (Version None)
Quarter: 2010Q4

REPORT INFORMATION
  Report Type: 
  Country: None (occurrence: None)
  Receive Date: 20101231
  Receipt Date: 20101222
  Transmission Date: 20110411
  Serious: Yes (Hospitalization)
  Sender: FDA-Public Use
  Company Number: US-PURDUE-USA-2010-0060867

PATIENT
  Sex: Female

DRUGS (2)
  1. OXYCONTIN [Suspect]
     Indication: NERVOUS SYSTEM DISORDER
     Dosage: 80 MG, BID
  2. OXYCONTIN [Suspect]
     Dosage: 40 MG, BID

REACTIONS (6)
  - CHILLS [None]
  - DRUG INEFFECTIVE [None]
  - DRUG WITHDRAWAL SYNDROME [None]
  - FALL [None]
  - HAEMORRHAGE [None]
  - LIMB INJURY [None]
